FAERS Safety Report 6577266-5 (Version None)
Quarter: 2010Q1

REPORT INFORMATION
  Report Type: 
  Country: None (occurrence: None)
  Receive Date: 20100210
  Receipt Date: 20100127
  Transmission Date: 20100710
  Serious: Yes (Death)
  Sender: FDA-Public Use
  Company Number: GB-BAUSCH-2010BL000503

PATIENT
  Age: 77 Year
  Sex: Male

DRUGS (9)
  1. DEXAMETHASONE [Suspect]
     Indication: APPETITE DISORDER
     Dates: start: 20070620, end: 20080721
  2. DEXAMETHASONE [Suspect]
     Indication: ASTHENIA
     Dates: start: 20070620, end: 20080721
  3. AMOXICILLIN [Concomitant]
     Indication: DRUG USE FOR UNKNOWN INDICATION
     Dates: start: 20080715, end: 20080720
  4. DIAMORPHINE [Concomitant]
     Indication: DRUG USE FOR UNKNOWN INDICATION
     Dates: start: 20080721, end: 20080722
  5. INTERFERON [Concomitant]
     Indication: RENAL CANCER
     Dates: start: 20070620, end: 20070620
  6. MIDAZOLAM HCL [Concomitant]
     Indication: DRUG USE FOR UNKNOWN INDICATION
     Dates: start: 20080721, end: 20080722
  7. NYSTATIN [Concomitant]
     Indication: ORAL CANDIDIASIS
     Route: 048
     Dates: start: 20070920, end: 20070927
  8. SUNITINIB MALATE [Concomitant]
     Indication: DECREASED APPETITE
     Dates: start: 20070701
  9. SUNITINIB MALATE [Concomitant]
     Indication: DIARRHOEA
     Dates: start: 20070701

REACTIONS (10)
  - APPETITE DISORDER [None]
  - ASTHENIA [None]
  - DIARRHOEA [None]
  - FACE OEDEMA [None]
  - FATIGUE [None]
  - INCONTINENCE [None]
  - MUCOSAL ULCERATION [None]
  - PNEUMONIA ASPIRATION [None]
  - RASH [None]
  - SEPSIS [None]
